FAERS Safety Report 9174038 (Version 1)
Quarter: 2013Q1

REPORT INFORMATION
  Report Type: Spontaneous
  Country: US (occurrence: US)
  Receive Date: 20130320
  Receipt Date: 20130320
  Transmission Date: 20140127
  Serious: No
  Sender: FDA-Public Use
  Company Number: US-PFIZER INC-2012267167

PATIENT
  Age: 41 Year
  Sex: Female

DRUGS (6)
  1. HYDROCHLOROTHIAZIDE [Suspect]
     Dosage: UNK
  2. MORPHINE SULFATE [Suspect]
     Dosage: UNK
  3. LOSARTAN POTASSIUM [Suspect]
     Dosage: UNK
  4. FLUOXETINE HYDROCHLORIDE [Suspect]
     Dosage: UNK
  5. CEPHALEXIN [Suspect]
     Dosage: UNK
  6. MOXIFLOXACIN [Suspect]
     Dosage: UNK

REACTIONS (1)
  - Urticaria [Unknown]
